FAERS Safety Report 5292077-9 (Version None)
Quarter: 2007Q2

REPORT INFORMATION
  Report Type: 
  Country: None (occurrence: None)
  Receive Date: 20070403
  Receipt Date: 20070320
  Transmission Date: 20071010
  Serious: Yes (Other)
  Sender: FDA-Public Use
  Company Number: 154242ISR

PATIENT
  Age: 35 Year
  Sex: Male

DRUGS (1)
  1. TRAZODONE HCL [Suspect]
     Dosage: 50 MG ORAL
     Route: 048
     Dates: start: 20070112, end: 20070212

REACTIONS (2)
  - DRUG WITHDRAWAL SYNDROME [None]
  - SUICIDAL IDEATION [None]
